FAERS Safety Report 4310851-X (Version None)
Quarter: 2004Q1

REPORT INFORMATION
  Report Type: 
  Country: None (occurrence: None)
  Receive Date: 20040302
  Receipt Date: 20040225
  Transmission Date: 20041129
  Serious: Yes (Hospitalization)
  Sender: FDA-Public Use
  Company Number: 2004200742FR

PATIENT
  Age: 52 Year
  Sex: Female

DRUGS (4)
  1. XANAX [Suspect]
     Dosage: QD, ORAL
     Route: 048
     Dates: start: 20030101
  2. ISOPTIN [Suspect]
     Dosage: QD, ORAL
     Route: 048
     Dates: start: 20040108, end: 20040119
  3. DIOSMIN (DIOSMIN) [Suspect]
     Dosage: ORAL
     Route: 048
     Dates: start: 20010101
  4. ZESTRIL [Suspect]
     Dates: start: 20010101

REACTIONS (1)
  - TOXIC SKIN ERUPTION [None]
